FAERS Safety Report 26099212 (Version 1)
Quarter: 2025Q4

REPORT INFORMATION
  Report Type: Spontaneous
  Country: US (occurrence: US)
  Receive Date: 20251128
  Receipt Date: 20251128
  Transmission Date: 20260117
  Serious: No
  Sender: TEVA
  Company Number: US-TEVA-VS-3392599

PATIENT
  Age: 77 Year
  Sex: Female

DRUGS (5)
  1. TERIPARATIDE [Suspect]
     Active Substance: TERIPARATIDE
     Indication: Product used for unknown indication
     Dosage: 560 MCG/2.24 ML
     Route: 065
     Dates: start: 202508
  2. PROLIA [Concomitant]
     Active Substance: DENOSUMAB
     Indication: Product used for unknown indication
     Dosage: IN THE PAST
     Route: 065
  3. Actinol [Concomitant]
     Indication: Product used for unknown indication
     Dosage: IN THE PAST
     Route: 065
  4. Prolista [Concomitant]
     Indication: Product used for unknown indication
     Dosage: IN THE PAST
     Route: 065
  5. MAGNESIUM [Concomitant]
     Active Substance: MAGNESIUM
     Indication: Product used for unknown indication
     Dosage: CURRENTLY
     Route: 065

REACTIONS (6)
  - Myalgia [Unknown]
  - Musculoskeletal chest pain [Unknown]
  - Bone pain [Unknown]
  - Electric shock sensation [Unknown]
  - Muscle spasms [Unknown]
  - Pain in extremity [Unknown]

NARRATIVE: CASE EVENT DATE: 20250801
